FAERS Safety Report 10191169 (Version 4)
Quarter: 2014Q2

REPORT INFORMATION
  Report Type: Report from Study
  Country: IT (occurrence: IT)
  Receive Date: 20140523
  Receipt Date: 20140606
  Transmission Date: 20141212
  Serious: Yes (Life-Threatening, Hospitalization)
  Sender: FDA-Public Use
  Company Number: IT-ROCHE-1298541

PATIENT
  Age: 66 Year
  Sex: Male
  Weight: 78 kg

DRUGS (21)
  1. RITUXIMAB [Suspect]
     Indication: B-CELL LYMPHOMA
     Route: 042
     Dates: start: 20130610
  2. RHUPH20/RITUXIMAB [Suspect]
     Indication: B-CELL LYMPHOMA
     Dosage: DATE OF LAST DOSE PRIOR TO SAE: 29/OCT/2013
     Route: 058
     Dates: end: 20131030
  3. RHUPH20/RITUXIMAB [Suspect]
     Route: 058
     Dates: start: 20130708
  4. RHUPH20/RITUXIMAB [Suspect]
     Route: 058
     Dates: start: 20130805
  5. RHUPH20/RITUXIMAB [Suspect]
     Route: 058
     Dates: start: 20130902
  6. DELTACORTENE [Concomitant]
     Indication: PREMEDICATION
     Route: 065
     Dates: start: 20120610
  7. PARACETAMOL [Concomitant]
     Indication: PREMEDICATION
     Route: 065
     Dates: start: 20130610
  8. TRIMETON (ITALY) [Concomitant]
     Route: 065
     Dates: start: 20130610
  9. KYTRIL [Concomitant]
     Indication: PREMEDICATION
     Route: 065
     Dates: start: 20130610
  10. ZANTAC [Concomitant]
     Indication: PREMEDICATION
     Dosage: 1 VIAL
     Route: 065
     Dates: start: 20130610
  11. CORDARONE [Concomitant]
     Indication: CARDIAC DISORDER
     Dosage: 2CPS/DIE
     Route: 065
     Dates: start: 20130315
  12. MYELOSTIM [Concomitant]
     Indication: NEUTROPENIA
     Dosage: 1 VIAL
     Route: 065
     Dates: start: 20130723, end: 20130725
  13. GLIBOMET [Concomitant]
     Dosage: 400MG/2.5 MG 2 CPS/DIE
     Route: 065
     Dates: start: 20130325
  14. SPIRIVA [Concomitant]
     Dosage: 160 MG/DIE
     Route: 065
     Dates: start: 20130325
  15. SALMETEROL XINAFOATE INHALER [Concomitant]
     Dosage: 250 MG/DAY
     Route: 065
  16. VALSARTAN [Concomitant]
     Indication: HYPERTENSION
     Dosage: 160 MG/DIE
     Route: 065
     Dates: start: 20130325
  17. VALACICLOVIR [Concomitant]
     Route: 065
     Dates: start: 20131216
  18. METFORMINA [Concomitant]
     Indication: DIABETES MELLITUS
     Route: 065
  19. ALIFLUS [Concomitant]
     Indication: BRONCHITIS CHRONIC
     Route: 065
  20. LASIX [Concomitant]
     Indication: RENAL FAILURE
     Dosage: 25 MG/DIE
     Route: 065
  21. BACTRIM FORTE [Concomitant]
     Dosage: 160 MG + 800 MG
     Route: 065
     Dates: start: 20131216

REACTIONS (1)
  - Cytomegalovirus infection [Recovered/Resolved]
